FAERS Safety Report 25075757 (Version 2)
Quarter: 2025Q3

REPORT INFORMATION
  Report Type: Spontaneous
  Country: US (occurrence: US)
  Receive Date: 20250313
  Receipt Date: 20250709
  Transmission Date: 20251021
  Serious: No
  Sender: KYOWA
  Company Number: US-KYOWAKIRIN-2025KK004637

PATIENT

DRUGS (1)
  1. CRYSVITA [Suspect]
     Active Substance: BUROSUMAB-TWZA
     Indication: Product used for unknown indication
     Dosage: 120 MG, 1X/4 WEEKS
     Route: 058

REACTIONS (4)
  - Illness [Unknown]
  - Movement disorder [Unknown]
  - Blood pressure increased [Unknown]
  - Arthralgia [Unknown]
